FAERS Safety Report 6165386-9 (Version None)
Quarter: 2009Q2

REPORT INFORMATION
  Report Type: 
  Country: None (occurrence: None)
  Receive Date: 20090423
  Receipt Date: 20090417
  Transmission Date: 20091009
  Serious: Yes (Other)
  Sender: FDA-Public Use
  Company Number: GB-BRISTOL-MYERS SQUIBB COMPANY-14594980

PATIENT
  Age: 1 Year
  Sex: Female

DRUGS (1)
  1. SINEMET [Suspect]
     Dosage: 1 DF- HALF A TABLET A DAY;  SINEMET 62.5 (CARBIDOPA 12.5MG/LEVODOPA 50MG)

REACTIONS (2)
  - HEPATIC FAILURE [None]
  - RENAL FAILURE [None]
